FAERS Safety Report 16851411 (Version 3)
Quarter: 2019Q3

REPORT INFORMATION
  Report Type: Spontaneous
  Country: US (occurrence: US)
  Receive Date: 20190925
  Receipt Date: 20190930
  Transmission Date: 20191005
  Serious: No
  Sender: FDA-Public Use
  Company Number: US-PFIZER INC-2019412568

PATIENT
  Age: 88 Year
  Sex: Female

DRUGS (4)
  1. PREMARIN [Suspect]
     Active Substance: ESTROGENS, CONJUGATED
     Indication: VULVOVAGINAL ERYTHEMA
     Dosage: UNK, ALTERNATE DAY (2.065 MG/30 GM PACKAGE OF 1; EVERY OTHER DAY)
  2. PREMARIN [Suspect]
     Active Substance: ESTROGENS, CONJUGATED
     Indication: VULVOVAGINAL PRURITUS
  3. PREMARIN [Suspect]
     Active Substance: ESTROGENS, CONJUGATED
     Indication: VULVOVAGINAL DRYNESS
  4. PREMARIN [Suspect]
     Active Substance: ESTROGENS, CONJUGATED
     Indication: BLOOD BLISTER
     Dosage: UNK, AS NEEDED
     Route: 067

REACTIONS (8)
  - Drug ineffective [Unknown]
  - Swelling face [Unknown]
  - Dizziness [Unknown]
  - Weight fluctuation [Unknown]
  - Off label use [Unknown]
  - Body height decreased [Unknown]
  - Fall [Unknown]
  - Expired product administered [Unknown]

NARRATIVE: CASE EVENT DATE: 20190501
